FAERS Safety Report 4386016-2 (Version None)
Quarter: 2004Q2

REPORT INFORMATION
  Report Type: 
  Country: None (occurrence: None)
  Receive Date: 20040628
  Receipt Date: 20030929
  Transmission Date: 20050107
  Serious: Yes (Other)
  Sender: FDA-Public Use
  Company Number: US-MERCK-0310USA00080

PATIENT
  Age: 60 Year
  Sex: Female
  Weight: 78 kg

DRUGS (10)
  1. ASPIRIN [Concomitant]
     Indication: MYOCARDIAL INFARCTION
     Route: 065
  2. CAPTOPRIL [Concomitant]
     Route: 065
  3. BAYCOL [Concomitant]
     Indication: BLOOD CHOLESTEROL INCREASED
     Route: 065
  4. ESTROGENS (UNSPECIFIED) [Concomitant]
     Route: 065
  5. HYDRODIURIL [Concomitant]
     Indication: HYPERTENSION
     Route: 065
  6. MOTRIN [Concomitant]
     Indication: PAIN
     Route: 065
  7. CLARITIN [Concomitant]
     Indication: HYPERSENSITIVITY
     Route: 065
  8. METOPROLOL [Concomitant]
     Route: 065
  9. NITROQUICK [Concomitant]
     Indication: CHEST PAIN
     Route: 065
  10. VIOXX [Suspect]
     Indication: ARTHRITIS
     Route: 048
     Dates: start: 20010101, end: 20010101

REACTIONS (8)
  - BACK PAIN [None]
  - BLOOD PRESSURE INCREASED [None]
  - CARDIAC DISORDER [None]
  - EMOTIONAL DISTRESS [None]
  - GASTROINTESTINAL DISORDER [None]
  - MYALGIA [None]
  - MYOCARDIAL INFARCTION [None]
  - PAIN IN EXTREMITY [None]
